FAERS Safety Report 20305617 (Version 8)
Quarter: 2023Q1

REPORT INFORMATION
  Report Type: Spontaneous
  Country: US (occurrence: US)
  Receive Date: 20220106
  Receipt Date: 20230110
  Transmission Date: 20230417
  Serious: No
  Sender: FDA-Public Use
  Company Number: US-PFIZER INC-202101242590

PATIENT
  Age: 64 Year
  Sex: Female

DRUGS (4)
  1. XELJANZ [Suspect]
     Active Substance: TOFACITINIB CITRATE
     Dosage: 10 MG
     Dates: start: 20190322, end: 2019
  2. XELJANZ [Suspect]
     Active Substance: TOFACITINIB CITRATE
     Dosage: 10 MG, TWICE DAILY
     Dates: start: 20190906
  3. XELJANZ [Suspect]
     Active Substance: TOFACITINIB CITRATE
     Dosage: 15 MG, DAILY (10 MG IN THE MORNING AND CUTTING 10 MG INTO HALF IN THE EVENING)
  4. XELJANZ [Suspect]
     Active Substance: TOFACITINIB CITRATE
     Dosage: 5 MG, 2 TABLETS IN THE MORNING AND ONE TABLET AT BEDTIME
     Route: 048

REACTIONS (8)
  - Malaise [Unknown]
  - Colitis [Recovered/Resolved]
  - Mucosal inflammation [Recovered/Resolved]
  - Proctitis [Recovered/Resolved]
  - Sinusitis [Unknown]
  - Infection [Recovering/Resolving]
  - Drug hypersensitivity [Unknown]
  - Off label use [Unknown]

NARRATIVE: CASE EVENT DATE: 20190322
